FAERS Safety Report 7645384-6 (Version None)
Quarter: 2011Q3

REPORT INFORMATION
  Report Type: 
  Country: None (occurrence: None)
  Receive Date: 20110729
  Receipt Date: 20110725
  Transmission Date: 20111222
  Serious: Yes (Hospitalization, Other)
  Sender: FDA-Public Use
  Company Number: US-ABBOTT-11P-163-0837317-00

PATIENT
  Sex: Female
  Weight: 68.1 kg

DRUGS (7)
  1. METOPROLOL TARTRATE [Concomitant]
     Indication: HYPERTENSION
  2. GLYBURIDE [Concomitant]
     Indication: DIABETES MELLITUS
  3. HUMIRA [Suspect]
     Indication: PSORIASIS
     Dates: start: 20070101
  4. ENALAPRIL MALEATE [Concomitant]
     Indication: RHEUMATOID ARTHRITIS
  5. CITALOPRAM HYDROBROMIDE [Concomitant]
     Indication: PRODUCT USED FOR UNKNOWN INDICATION
  6. HUMIRA [Suspect]
     Indication: RHEUMATOID ARTHRITIS
  7. CLONAZEPAM [Concomitant]
     Indication: PRODUCT USED FOR UNKNOWN INDICATION

REACTIONS (8)
  - HEMIPARESIS [None]
  - MUSCULAR WEAKNESS [None]
  - GRIP STRENGTH DECREASED [None]
  - FATIGUE [None]
  - LOCALISED INFECTION [None]
  - PSORIASIS [None]
  - CEREBROVASCULAR ACCIDENT [None]
  - FACIAL ASYMMETRY [None]
